FAERS Safety Report 9612004 (Version 1)
Quarter: 2013Q4

REPORT INFORMATION
  Report Type: Spontaneous
  Country: FR (occurrence: FR)
  Receive Date: 20131010
  Receipt Date: 20131010
  Transmission Date: 20140711
  Serious: Yes (Hospitalization)
  Sender: FDA-Public Use
  Company Number: FR-ABBVIE-13P-056-1156040-00

PATIENT
  Age: 35 Year
  Sex: Male

DRUGS (1)
  1. DEPAKINE CHRONO [Suspect]
     Indication: EPILEPSY
     Dosage: TIME TO ONSET: FEW YEARS; DURATION: FEW YEARS
     Route: 048
     Dates: start: 2006, end: 20130730

REACTIONS (2)
  - Rhabdomyolysis [Recovered/Resolved]
  - Condition aggravated [Unknown]
